FAERS Safety Report 9697065 (Version 2)
Quarter: 2013Q4

REPORT INFORMATION
  Report Type: Report from Study
  Country: US (occurrence: US)
  Receive Date: 20131120
  Receipt Date: 20131120
  Transmission Date: 20140711
  Serious: Yes (Death)
  Sender: FDA-Public Use
  Company Number: US-ROCHE-1297524

PATIENT
  Sex: Male

DRUGS (2)
  1. VALGANCICLOVIR [Suspect]
     Indication: BRAIN NEOPLASM MALIGNANT
     Route: 048
  2. VALGANCICLOVIR [Suspect]
     Indication: BRAIN NEOPLASM

REACTIONS (1)
  - Glioblastoma multiforme [Fatal]
